FAERS Safety Report 12388575 (Version 1)
Quarter: 2016Q2

REPORT INFORMATION
  Report Type: Spontaneous
  Country: US (occurrence: US)
  Receive Date: 20160520
  Receipt Date: 20160520
  Transmission Date: 20160815
  Serious: No
  Sender: FDA-Public Use
  Company Number: US-PFIZER INC-2016242251

PATIENT
  Age: 22 Year
  Sex: Male

DRUGS (7)
  1. REXULTI [Suspect]
     Active Substance: BREXPIPRAZOLE
     Indication: ANXIETY
     Dosage: 1 MG, 1X/DAY
     Route: 048
  2. XANAX [Concomitant]
     Active Substance: ALPRAZOLAM
     Dosage: UNK
  3. REXULTI [Suspect]
     Active Substance: BREXPIPRAZOLE
     Dosage: 3 MG, DAILY (2 MG AT NIGHT AND 1 MG IN THE MORNING)
     Route: 048
  4. LATUDA [Suspect]
     Active Substance: LURASIDONE HYDROCHLORIDE
     Indication: ANXIETY
     Dosage: UNK
  5. GEODON [Suspect]
     Active Substance: ZIPRASIDONE HYDROCHLORIDE\ZIPRASIDONE MESYLATE
     Indication: ANXIETY
     Dosage: UNK
  6. REXULTI [Suspect]
     Active Substance: BREXPIPRAZOLE
     Dosage: 2 MG, DAILY
     Route: 048
  7. EFFEXOR XR [Concomitant]
     Active Substance: VENLAFAXINE HYDROCHLORIDE
     Dosage: UNK

REACTIONS (8)
  - Paraesthesia [Recovered/Resolved]
  - Dyskinesia [Recovered/Resolved]
  - Feeling abnormal [Recovered/Resolved]
  - Nervous system disorder [Recovered/Resolved]
  - Hunger [Recovering/Resolving]
  - Headache [Recovered/Resolved]
  - Anxiety [Recovering/Resolving]
  - Weight increased [Not Recovered/Not Resolved]
